FAERS Safety Report 20747031 (Version 3)
Quarter: 2022Q4

REPORT INFORMATION
  Report Type: Report from Study
  Country: US (occurrence: US)
  Receive Date: 20220425
  Receipt Date: 20221121
  Transmission Date: 20230113
  Serious: Yes (Other)
  Sender: FDA-Public Use
  Company Number: US-JAZZ-2022-US-012495

PATIENT
  Age: 36 Year
  Sex: Male

DRUGS (5)
  1. XYREM [Suspect]
     Active Substance: SODIUM OXYBATE
     Indication: Product used for unknown indication
     Dosage: 9 GRAM, QD
     Route: 048
  2. MODAFINIL [Concomitant]
     Active Substance: MODAFINIL
     Dosage: UNK UNK, QD
     Dates: start: 20150829
  3. DESIPRAMINE [Concomitant]
     Active Substance: DESIPRAMINE
     Dosage: UNK UNK, QD
     Dates: start: 20160122
  4. METOPROLOL SUCCINATE [Concomitant]
     Active Substance: METOPROLOL SUCCINATE
     Dosage: 0000
     Dates: start: 20210719
  5. FLUDROCORTISONE [Concomitant]
     Active Substance: FLUDROCORTISONE
     Dosage: 0000
     Dates: start: 20220209

REACTIONS (2)
  - Colitis ulcerative [Unknown]
  - Mitral valve prolapse [Not Recovered/Not Resolved]

NARRATIVE: CASE EVENT DATE: 20150909
